FAERS Safety Report 4901633-6 (Version None)
Quarter: 2006Q1

REPORT INFORMATION
  Report Type: 
  Country: None (occurrence: None)
  Receive Date: 20060206
  Receipt Date: 20050729
  Transmission Date: 20060701
  Serious: Yes (Other)
  Sender: FDA-Public Use
  Company Number: US-BRISTOL-MYERS SQUIBB COMPANY-13057427

PATIENT
  Age: 64 Year
  Sex: Female

DRUGS (7)
  1. CARBOPLATIN [Suspect]
     Route: 042
     Dates: start: 20050518, end: 20050616
  2. TAXOL [Suspect]
     Route: 042
     Dates: start: 20050518, end: 20050616
  3. CIMETIDINE [Concomitant]
  4. ONDANSETRON [Concomitant]
  5. NEULASTA [Concomitant]
  6. DECADRON PHOSPHATE [Concomitant]
  7. DIPHENHYDRAMINE [Concomitant]

REACTIONS (1)
  - NEUROPATHY PERIPHERAL [None]
